FAERS Safety Report 5166499-0 (Version None)
Quarter: 2006Q4

REPORT INFORMATION
  Report Type: 
  Country: None (occurrence: None)
  Receive Date: 20061207
  Receipt Date: 20060706
  Transmission Date: 20070319
  Serious: Yes (Other)
  Sender: FDA-Public Use
  Company Number: CH-BRISTOL-MYERS SQUIBB COMPANY-13442389

PATIENT
  Age: 71 Year
  Sex: Male

DRUGS (3)
  1. CETUXIMAB [Suspect]
     Indication: COLON CANCER METASTATIC
     Route: 041
  2. OXALIPLATIN [Suspect]
     Indication: COLON CANCER METASTATIC
     Route: 041
  3. FLUOROURACIL [Suspect]
     Indication: COLON CANCER METASTATIC
     Route: 048

REACTIONS (3)
  - CHILLS [None]
  - PYREXIA [None]
  - TRANSIENT ACANTHOLYTIC DERMATOSIS [None]
